FAERS Safety Report 16577545 (Version 1)
Quarter: 2019Q3

REPORT INFORMATION
  Report Type: Spontaneous
  Country: US (occurrence: US)
  Receive Date: 20190715
  Receipt Date: 20190715
  Transmission Date: 20191004
  Serious: No
  Sender: FDA-Public Use
  Company Number: None

PATIENT
  Age: 62 Year
  Sex: Female
  Weight: 56.7 kg

DRUGS (1)
  1. CVS LONG LASTING LUBRICANT EYE [Suspect]
     Active Substance: POLYETHYLENE GLYCOL 400\PROPYLENE GLYCOL
     Indication: DRY EYE
     Dosage: ?          QUANTITY:1 DROP(S);?
     Route: 047
     Dates: start: 20190705, end: 20190713

REACTIONS (5)
  - Product substitution issue [None]
  - Instillation site pain [None]
  - Vision blurred [None]
  - Recalled product administered [None]
  - Visual impairment [None]

NARRATIVE: CASE EVENT DATE: 20190705
